FAERS Safety Report 23778225 (Version 3)
Quarter: 2025Q2

REPORT INFORMATION
  Report Type: Spontaneous
  Country: CA (occurrence: CA)
  Receive Date: 20240424
  Receipt Date: 20250424
  Transmission Date: 20250716
  Serious: Yes (Other)
  Sender: PFIZER
  Company Number: CA-TAKEDA-2024TUS036776

PATIENT
  Age: 70 Year
  Sex: Female

DRUGS (18)
  1. PANTOPRAZOLE [Suspect]
     Active Substance: PANTOPRAZOLE
     Indication: Gastrointestinal disorder
  2. VENLAFAXINE HYDROCHLORIDE [Suspect]
     Active Substance: VENLAFAXINE HYDROCHLORIDE
     Indication: Myalgia
  3. VENLAFAXINE HYDROCHLORIDE [Suspect]
     Active Substance: VENLAFAXINE HYDROCHLORIDE
     Indication: Hypertension
  4. DIPHENHYDRAMINE [Suspect]
     Active Substance: DIPHENHYDRAMINE
     Indication: Hypertension
  5. DEXTROMETHORPHAN HYDROBROMIDE [Suspect]
     Active Substance: DEXTROMETHORPHAN HYDROBROMIDE
     Indication: Hypertension
  6. PSEUDOEPHEDRINE HYDROCHLORIDE [Suspect]
     Active Substance: PSEUDOEPHEDRINE HYDROCHLORIDE
  7. AMITRIPTYLINE HYDROCHLORIDE [Suspect]
     Active Substance: AMITRIPTYLINE HYDROCHLORIDE
     Indication: Myalgia
  8. AMITRIPTYLINE HYDROCHLORIDE [Suspect]
     Active Substance: AMITRIPTYLINE HYDROCHLORIDE
     Indication: Hypertension
  9. CELECOXIB [Suspect]
     Active Substance: CELECOXIB
  10. DICLOFENAC SODIUM [Suspect]
     Active Substance: DICLOFENAC SODIUM
     Indication: Myalgia
  11. IBUPROFEN [Suspect]
     Active Substance: IBUPROFEN
  12. ROSUVASTATIN CALCIUM [Suspect]
     Active Substance: ROSUVASTATIN CALCIUM
  13. MEFENAMIC ACID [Suspect]
     Active Substance: MEFENAMIC ACID
     Indication: Myalgia
  14. OMEPRAZOLE [Suspect]
     Active Substance: OMEPRAZOLE
     Indication: Gastrointestinal disorder
  15. ROSUVASTATIN [Suspect]
     Active Substance: ROSUVASTATIN
  16. AMITRIPTYLINE PAMOATE [Suspect]
     Active Substance: AMITRIPTYLINE PAMOATE
     Indication: Myalgia
  17. PANTOPRAZOLE SODIUM ANHYDROUS [Suspect]
     Active Substance: PANTOPRAZOLE SODIUM ANHYDROUS
     Indication: Gastrointestinal disorder
  18. RANITIDINE HYDROCHLORIDE [Concomitant]
     Active Substance: RANITIDINE HYDROCHLORIDE

REACTIONS (5)
  - Gastrointestinal disorder [Unknown]
  - Hypertension [Unknown]
  - Myalgia [Unknown]
  - Urinary retention [Unknown]
  - Vitamin B12 decreased [Unknown]
